FAERS Safety Report 5720226-4 (Version None)
Quarter: 2008Q2

REPORT INFORMATION
  Report Type: 
  Country: None (occurrence: None)
  Receive Date: 20080428
  Receipt Date: 20080422
  Transmission Date: 20081010
  Serious: Yes (Other)
  Sender: FDA-Public Use
  Company Number: BR-WYE-H03760208

PATIENT
  Sex: Female
  Weight: 66 kg

DRUGS (8)
  1. PREMARIN [Suspect]
     Indication: HORMONE REPLACEMENT THERAPY
     Dosage: 1.25 MG
     Route: 048
  2. PREMARIN [Suspect]
     Route: 048
     Dates: start: 20070901
  3. SERTRALINE HYDROCHLORIDE [Concomitant]
     Indication: DEPRESSION
     Route: 048
     Dates: start: 20060401
  4. COLLAGEN [Concomitant]
     Indication: ALOPECIA
     Route: 048
     Dates: start: 20080301
  5. VITAMINS [Concomitant]
     Indication: ALOPECIA
     Dosage: UNKNOWN
     Route: 048
     Dates: start: 20080201
  6. VITAMINS [Concomitant]
     Indication: NAIL DISORDER
  7. LEVOTHYROXINE SODIUM [Concomitant]
     Indication: HYPOTHYROIDISM
     Route: 048
     Dates: start: 20000401
  8. RIVOTRIL [Concomitant]
     Indication: PANIC DISORDER
     Route: 048
     Dates: start: 20020401

REACTIONS (3)
  - DEAFNESS [None]
  - DRUG INEFFECTIVE [None]
  - TINNITUS [None]
